FAERS Safety Report 9056112 (Version 2)
Quarter: 2013Q2

REPORT INFORMATION
  Report Type: Spontaneous
  Country: DE (occurrence: DE)
  Receive Date: 20130205
  Receipt Date: 20130506
  Transmission Date: 20140414
  Serious: Yes (Hospitalization, Other)
  Sender: FDA-Public Use
  Company Number: DE-ELI_LILLY_AND_COMPANY-DE201207005892

PATIENT
  Age: 80 Year
  Sex: Female

DRUGS (5)
  1. FORSTEO [Suspect]
     Indication: OSTEOPOROSIS
     Dosage: UNK, QD
     Route: 058
     Dates: start: 20111028
  2. CALCIUM [Concomitant]
  3. VITAMIN D NOS [Concomitant]
  4. MARCUMAR [Concomitant]
  5. DIURETIC                           /00022001/ [Concomitant]

REACTIONS (8)
  - Thrombosis [Not Recovered/Not Resolved]
  - Arterial occlusive disease [Recovered/Resolved]
  - Angiopathy [Unknown]
  - Pain in extremity [Unknown]
  - Osteoarthritis [Not Recovered/Not Resolved]
  - Nail disorder [Not Recovered/Not Resolved]
  - Gait disturbance [Recovering/Resolving]
  - Muscle spasms [Unknown]
